FAERS Safety Report 8721975 (Version 3)
Quarter: 2012Q4

REPORT INFORMATION
  Report Type: 
  Country: US (occurrence: US)
  Receive Date: 20120814
  Receipt Date: 20121203
  Transmission Date: 20130627
  Serious: Yes (Hospitalization)
  Sender: FDA-Public Use
  Company Number: US-PFIZER INC-2012195809

PATIENT
  Age: 79 Year
  Sex: Female
  Weight: 49 kg

DRUGS (12)
  1. SUTENT [Suspect]
     Indication: METASTATIC RENAL CELL CARCINOMA
     Dosage: 25 mg, daily,for 4 weeks
     Route: 048
     Dates: start: 20120719
  2. SUTENT [Suspect]
     Dosage: 12.5 mg, daily
  3. DILTIAZEM HYDROCHLORIDE [Concomitant]
     Indication: BLOOD PRESSURE HIGH
     Dosage: 240 mg, daily
  4. LISINOPRIL W/HYDROCHLOROTHIAZIDE [Concomitant]
     Indication: BLOOD PRESSURE HIGH
     Dosage: 20/25 mg, daily
  5. ATENOLOL [Concomitant]
     Indication: PULSE ABNORMAL
     Dosage: UNK, daily
     Route: 048
  6. NEXIUM [Concomitant]
     Indication: HYPERACIDITY
     Dosage: 40 mg, daily
  7. LIPITOR [Concomitant]
     Indication: HIGH CHOLESTEROL
     Dosage: 20 mg, 5x/week
  8. FOSAMAX [Concomitant]
     Indication: BONE DISORDER
     Dosage: 70 mg, daily
  9. ZOFRAN [Concomitant]
  10. CARDIZEM [Concomitant]
  11. HYDROCHLOROTHIAZIDE [Concomitant]
  12. LISINOPRIL [Concomitant]

REACTIONS (5)
  - Viral infection [Recovered/Resolved]
  - Disease progression [Unknown]
  - Metastatic renal cell carcinoma [Unknown]
  - Incorrect storage of drug [Recovered/Resolved]
  - Malaise [Unknown]
